FAERS Safety Report 6701759-0 (Version None)
Quarter: 2010Q2

REPORT INFORMATION
  Report Type: 
  Country: None (occurrence: None)
  Receive Date: 20100429
  Receipt Date: 20100423
  Transmission Date: 20101027
  Serious: Yes (Death, Other)
  Sender: FDA-Public Use
  Company Number: PHHY2010US27121

PATIENT
  Sex: Male

DRUGS (1)
  1. EXJADE [Suspect]
     Dosage: 2000 MG, DAILY
     Route: 048
     Dates: start: 20100416

REACTIONS (3)
  - APLASTIC ANAEMIA [None]
  - ORGAN FAILURE [None]
  - PANCREATITIS [None]
